FAERS Safety Report 23594371 (Version 1)
Quarter: 2024Q1

REPORT INFORMATION
  Report Type: Spontaneous
  Country: US (occurrence: US)
  Receive Date: 20240305
  Receipt Date: 20240305
  Transmission Date: 20240410
  Serious: No
  Sender: FDA-Public Use
  Company Number: US-JNJFOC-20240246806

PATIENT

DRUGS (13)
  1. TYLENOL [Suspect]
     Active Substance: ACETAMINOPHEN
     Indication: Injection site pain
     Route: 065
  2. IBUPROFEN [Suspect]
     Active Substance: IBUPROFEN
     Indication: Injection site pain
     Route: 065
  3. ACETAMINOPHEN\ASPIRIN\CAFFEINE\SALICYLAMIDE [Suspect]
     Active Substance: ACETAMINOPHEN\ASPIRIN\CAFFEINE\SALICYLAMIDE
     Indication: Injection site pain
     Route: 065
  4. ASPIRIN [Suspect]
     Active Substance: ASPIRIN
     Indication: Injection site pain
     Route: 065
  5. ARNICA MONTANA FLOWER [Suspect]
     Active Substance: ARNICA MONTANA FLOWER
     Indication: Injection site pain
     Route: 065
  6. ALCOHOL [Suspect]
     Active Substance: ALCOHOL
     Indication: Injection site pain
     Route: 065
  7. AMLODIPINE [Concomitant]
     Active Substance: AMLODIPINE BESYLATE
     Indication: Hypertension
     Dosage: 5MG OR 10MG ONCE A DAY
     Route: 065
  8. PFIZER-BIONTECH COVID-19 VACCINE [Concomitant]
     Active Substance: TOZINAMERAN
     Indication: COVID-19
     Dosage: LEFT ARM
     Route: 065
     Dates: start: 20231007
  9. TOLTERODINE [Concomitant]
     Active Substance: TOLTERODINE
     Indication: Hypertonic bladder
     Dosage: 4MG. TAKES ONCE A DAY FOR INCONTINENCE AND OVERACTIVE BLADDER
     Route: 065
  10. TOLTERODINE [Concomitant]
     Active Substance: TOLTERODINE
     Indication: Urinary incontinence
  11. GEMTESA [Concomitant]
     Active Substance: VIBEGRON
     Indication: Intervertebral disc protrusion
     Dosage: 75 ONCE A DAY
     Route: 065
  12. HYDROXYZINE [Concomitant]
     Active Substance: HYDROXYZINE HYDROCHLORIDE
     Indication: Multiple allergies
     Route: 065
  13. OLMESARTAN [Concomitant]
     Active Substance: OLMESARTAN
     Indication: Hypertension
     Route: 065

REACTIONS (1)
  - Pain [Not Recovered/Not Resolved]
